FAERS Safety Report 20441004 (Version 1)
Quarter: 2022Q1

REPORT INFORMATION
  Report Type: Spontaneous
  Country: US (occurrence: US)
  Receive Date: 20220208
  Receipt Date: 20220208
  Transmission Date: 20220423
  Serious: No
  Sender: FDA-Public Use
  Company Number: US-ELI_LILLY_AND_COMPANY-US202202002301

PATIENT
  Sex: Female

DRUGS (1)
  1. BASAGLAR [Suspect]
     Active Substance: INSULIN GLARGINE
     Indication: Type 2 diabetes mellitus
     Dosage: 30 U, DAILY, IN TWO SEGMENTS
     Route: 058
     Dates: start: 202201

REACTIONS (3)
  - Abdominal discomfort [Recovering/Resolving]
  - Injection site pain [Recovering/Resolving]
  - Inappropriate schedule of product administration [Unknown]
